FAERS Safety Report 5781962-7 (Version None)
Quarter: 2008Q2

REPORT INFORMATION
  Report Type: 
  Country: None (occurrence: None)
  Receive Date: 20080623
  Receipt Date: 20080617
  Transmission Date: 20081010
  Serious: Yes (Hospitalization)
  Sender: FDA-Public Use
  Company Number: B0526071A

PATIENT
  Age: 79 Year
  Sex: Male

DRUGS (3)
  1. REQUIP [Suspect]
     Indication: INSOMNIA
     Dosage: .25MG PER DAY
     Route: 048
     Dates: start: 20080425
  2. ASCAL CARDIO [Concomitant]
     Dosage: 100MG PER DAY
     Route: 048
  3. DIOVAN HCT [Concomitant]
     Route: 048

REACTIONS (6)
  - ARRHYTHMIA [None]
  - FALL [None]
  - PAIN [None]
  - PARAESTHESIA [None]
  - SOMNOLENCE [None]
  - SYNCOPE [None]
